FAERS Safety Report 9268371 (Version 2)
Quarter: 2013Q2

REPORT INFORMATION
  Report Type: Spontaneous
  Country: JP (occurrence: JP)
  Receive Date: 20130502
  Receipt Date: 20130517
  Transmission Date: 20140414
  Serious: Yes (Hospitalization)
  Sender: FDA-Public Use
  Company Number: JP-B.I. PHARMACEUTICALS,INC./RIDGEFIELD-2013-BI-12427NB

PATIENT
  Age: 67 Year
  Sex: Female

DRUGS (5)
  1. PRAZAXA [Suspect]
     Dosage: 220 MG
     Route: 048
     Dates: start: 201211
  2. BAYASPIRIN [Concomitant]
     Route: 065
  3. GASTER [Concomitant]
     Route: 065
  4. ADALAT [Concomitant]
     Route: 065
  5. NU-LOTAN [Concomitant]
     Route: 065

REACTIONS (1)
  - Cerebral infarction [Unknown]
